FAERS Safety Report 19405187 (Version 1)
Quarter: 2021Q2

REPORT INFORMATION
  Report Type: Spontaneous
  Country: US (occurrence: US)
  Receive Date: 20210611
  Receipt Date: 20210611
  Transmission Date: 20210717
  Serious: No
  Sender: FDA-Public Use
  Company Number: None

PATIENT
  Age: 4 Year
  Sex: Male
  Weight: 19 kg

DRUGS (1)
  1. PENTAMIDINE SOLUTION FOR INJECTION [Suspect]
     Active Substance: PENTAMIDINE
     Indication: PROPHYLAXIS
     Dosage: OTHER FREQUENCY:ONCE;?
     Route: 042

REACTIONS (2)
  - Cough [None]
  - Tachycardia [None]

NARRATIVE: CASE EVENT DATE: 20210601
